FAERS Safety Report 5333378-5 (Version None)
Quarter: 2007Q2

REPORT INFORMATION
  Report Type: 
  Country: None (occurrence: None)
  Receive Date: 20070306
  Receipt Date: 20060112
  Transmission Date: 20071010
  Serious: Yes (Hospitalization)
  Sender: FDA-Public Use
  Company Number: A03200600276

PATIENT
  Sex: Male

DRUGS (4)
  1. PLAVIX [Suspect]
     Indication: CATHETERISATION CARDIAC
     Dosage: 75 MG QD - ORAL
     Route: 048
     Dates: start: 19960101
  2. METOPROLOL SUCCINATE [Concomitant]
  3. WARFARIN SODIUM [Concomitant]
  4. ISOSORBIDE DINITRATE [Concomitant]

REACTIONS (2)
  - ABDOMINAL DISCOMFORT [None]
  - MYOCARDIAL INFARCTION [None]
